FAERS Safety Report 4495011-4 (Version None)
Quarter: 2004Q4

REPORT INFORMATION
  Report Type: 
  Country: None (occurrence: None)
  Receive Date: 20041105
  Receipt Date: 20041105
  Transmission Date: 20050328
  Serious: Yes (Life-Threatening)
  Sender: FDA-Public Use
  Company Number: None

PATIENT

DRUGS (3)
  1. MERCAPTOPURINE [Suspect]
     Indication: COLITIS ULCERATIVE
     Dosage: 50MG BID
  2. BALAZIDE [Concomitant]
  3. TOPICAL 5 - ASA SUPPOSITORIES [Concomitant]

REACTIONS (4)
  - DISEASE RECURRENCE [None]
  - DRUG LEVEL BELOW THERAPEUTIC [None]
  - INFLAMMATORY BOWEL DISEASE [None]
  - PHARMACEUTICAL PRODUCT COMPLAINT [None]
